FAERS Safety Report 8328357-X (Version None)
Quarter: 2012Q2

REPORT INFORMATION
  Report Type: 
  Country: None (occurrence: None)
  Receive Date: 20120502
  Receipt Date: 20120426
  Transmission Date: 20120825
  Serious: Yes (Other)
  Sender: FDA-Public Use
  Company Number: CN-PFIZER INC-2012106854

PATIENT
  Age: 22 Year
  Sex: Female

DRUGS (2)
  1. SOLU-MEDROL [Suspect]
     Dosage: 24MG DAILY
     Dates: start: 20120101
  2. SOLU-MEDROL [Suspect]
     Indication: SYSTEMIC LUPUS ERYTHEMATOSUS
     Dosage: 40MG DAILY
     Dates: start: 20120101, end: 20120101

REACTIONS (1)
  - EPILEPSY [None]
